FAERS Safety Report 8790885 (Version 1)
Quarter: 2012Q4

REPORT INFORMATION
  Report Type: Spontaneous
  Country: TR (occurrence: None)
  Receive Date: 20120907
  Receipt Date: 20120907
  Transmission Date: 20130627
  Serious: Yes (Other)
  Sender: FDA-Public Use
  Company Number: DSA_59314_2012

PATIENT

DRUGS (2)
  1. FLUOROURACIL (FLUOROURACIL) [Suspect]
     Indication: LARYNGEAL CANCER
     Dosage: 600 mg/m2/day, administered on days 1-5
  2. CISPLATIN [Suspect]
     Indication: LARYNGEAL CANCER
     Dosage: 600 mg/m2/day, administered on days 1-5

REACTIONS (1)
  - Nephropathy toxic [None]
